FAERS Safety Report 13850860 (Version 1)
Quarter: 2017Q3

REPORT INFORMATION
  Report Type: Spontaneous
  Country: US (occurrence: US)
  Receive Date: 20170810
  Receipt Date: 20170810
  Transmission Date: 20171127
  Serious: Yes (Other)
  Sender: FDA-Public Use
  Company Number: US-BEH-2017082583

PATIENT
  Sex: Male
  Weight: 47.62 kg

DRUGS (10)
  1. LMX                                /00033401/ [Concomitant]
  2. BERINERT [Suspect]
     Active Substance: HUMAN C1-ESTERASE INHIBITOR
     Dosage: UNK
     Route: 042
  3. EPINEPHRINE. [Concomitant]
     Active Substance: EPINEPHRINE
  4. MULTIVITAMINS [Concomitant]
     Active Substance: VITAMINS
  5. BERINERT [Suspect]
     Active Substance: HUMAN C1-ESTERASE INHIBITOR
     Indication: HEREDITARY ANGIOEDEMA
     Dosage: 1000 IU, AS DIRECTED
     Route: 042
     Dates: start: 20160628
  6. HEPARIN [Concomitant]
     Active Substance: HEPARIN SODIUM
  7. ZOFRAN [Concomitant]
     Active Substance: ONDANSETRON HYDROCHLORIDE
  8. LIDOCAINE. [Concomitant]
     Active Substance: LIDOCAINE
  9. SODIUM CHLORIDE. [Concomitant]
     Active Substance: SODIUM CHLORIDE
  10. TRANEXAMIC ACID. [Concomitant]
     Active Substance: TRANEXAMIC ACID

REACTIONS (1)
  - Drug ineffective [Unknown]
